FAERS Safety Report 10022089 (Version 1)
Quarter: 2014Q1

REPORT INFORMATION
  Report Type: Spontaneous
  Country: US (occurrence: US)
  Receive Date: 20140319
  Receipt Date: 20140319
  Transmission Date: 20141002
  Serious: Yes (Hospitalization)
  Sender: FDA-Public Use
  Company Number: US-GLAXOSMITHKLINE-A1064717A

PATIENT
  Age: 76 Year
  Sex: Male

DRUGS (3)
  1. FLOVENT [Suspect]
     Indication: ASTHMA PROPHYLAXIS
     Dosage: 1PUFF TWICE PER DAY
     Route: 055
  2. TERAZOSIN [Concomitant]
  3. ALLERGY MEDICATION [Concomitant]

REACTIONS (2)
  - Colonoscopy [Unknown]
  - Procedural complication [Recovered/Resolved]
